FAERS Safety Report 5860707-6 (Version None)
Quarter: 2008Q3

REPORT INFORMATION
  Report Type: 
  Country: None (occurrence: None)
  Receive Date: 20080827
  Receipt Date: 20071019
  Transmission Date: 20090109
  Serious: No
  Sender: FDA-Public Use
  Company Number: US-ABBOTT-07P-163-0422099-00

PATIENT
  Sex: Male

DRUGS (2)
  1. NIASPAN [Suspect]
     Indication: LOW DENSITY LIPOPROTEIN
     Route: 048
  2. NIASPAN [Suspect]
     Route: 048
     Dates: start: 20071005

REACTIONS (4)
  - FLUSHING [None]
  - PROSTATIC SPECIFIC ANTIGEN INCREASED [None]
  - URINARY TRACT INFECTION [None]
  - URINE ODOUR ABNORMAL [None]
